FAERS Safety Report 6427537-8 (Version None)
Quarter: 2009Q4

REPORT INFORMATION
  Report Type: 
  Country: None (occurrence: None)
  Receive Date: 20091030
  Receipt Date: 20091019
  Transmission Date: 20100525
  Serious: No
  Sender: FDA-Public Use
  Company Number: 2009SP029614

PATIENT
  Sex: Female

DRUGS (4)
  1. MIRALAX [Suspect]
     Indication: DRUG USE FOR UNKNOWN INDICATION
     Dosage: 8.5 GM;UNK;PO, 17 GM;ONCE;PO
     Route: 048
     Dates: end: 20090618
  2. MIRALAX [Suspect]
     Indication: DRUG USE FOR UNKNOWN INDICATION
     Dosage: 8.5 GM;UNK;PO, 17 GM;ONCE;PO
     Route: 048
     Dates: start: 20090616
  3. ANTIACID [Concomitant]
  4. LAMICTAL [Concomitant]

REACTIONS (3)
  - FAECAL INCONTINENCE [None]
  - HAEMORRHAGE [None]
  - RECTAL HAEMORRHAGE [None]
